FAERS Safety Report 9444228 (Version 1)
Quarter: 2013Q3

REPORT INFORMATION
  Report Type: Spontaneous
  Country: US (occurrence: None)
  Receive Date: 20130806
  Receipt Date: 20130806
  Transmission Date: 20140515
  Serious: Yes (Other)
  Sender: FDA-Public Use
  Company Number: None

PATIENT
  Age: 68 Year
  Sex: Female
  Weight: 76.66 kg

DRUGS (1)
  1. WELCHOL [Suspect]
     Dosage: 1875 MG 2X DAILY ORAL
     Route: 048
     Dates: start: 201212, end: 201304

REACTIONS (1)
  - Alopecia [None]
